FAERS Safety Report 9551081 (Version 2)
Quarter: 2013Q3

REPORT INFORMATION
  Report Type: Report from Study
  Country: DE (occurrence: DE)
  Receive Date: 20130925
  Receipt Date: 20130925
  Transmission Date: 20140515
  Serious: Yes (Other)
  Sender: FDA-Public Use
  Company Number: DE-ROCHE-1269775

PATIENT
  Sex: Female

DRUGS (6)
  1. RANIBIZUMAB [Suspect]
     Indication: VISUAL IMPAIRMENT
     Route: 050
     Dates: start: 20121212
  2. RANIBIZUMAB [Suspect]
     Route: 050
     Dates: start: 20130215
  3. RANIBIZUMAB [Suspect]
     Route: 050
     Dates: start: 20130322
  4. RANIBIZUMAB [Suspect]
     Route: 050
     Dates: start: 20130517
  5. RANIBIZUMAB [Suspect]
     Route: 050
     Dates: start: 20130621
  6. RANIBIZUMAB [Suspect]
     Route: 050
     Dates: start: 20130802

REACTIONS (3)
  - Intraocular pressure increased [Not Recovered/Not Resolved]
  - Visual field defect [Unknown]
  - Thrombosis [Unknown]
